FAERS Safety Report 15026937 (Version 1)
Quarter: 2018Q2

REPORT INFORMATION
  Report Type: Spontaneous
  Country: DE (occurrence: DE)
  Receive Date: 20180619
  Receipt Date: 20180619
  Transmission Date: 20180711
  Serious: Yes (Hospitalization)
  Sender: FDA-Public Use
  Company Number: DE-TEVA-2018-DE-908633

PATIENT
  Age: 59 Year
  Sex: Female
  Weight: 120 kg

DRUGS (13)
  1. TAVOR [Concomitant]
     Route: 048
  2. BENZBROMARON [Concomitant]
     Route: 048
  3. METFORMIN [Concomitant]
     Active Substance: METFORMIN HYDROCHLORIDE
     Route: 048
  4. STANGYL [Suspect]
     Active Substance: TRIMIPRAMINE MALEATE
     Route: 048
  5. L-THYROXIN [Concomitant]
     Active Substance: LEVOTHYROXINE SODIUM
     Route: 048
  6. BISOHEXAL [Concomitant]
     Active Substance: BISOPROLOL FUMARATE
     Route: 048
  7. OXYCODON [Suspect]
     Active Substance: OXYCODONE
     Route: 048
  8. MAGNESIUM [Concomitant]
     Active Substance: MAGNESIUM
     Route: 048
  9. ASPIRIN. [Concomitant]
     Active Substance: ASPIRIN
     Route: 048
  10. COAPROVEL 300MG/12,5MG [Concomitant]
     Route: 048
  11. FUROSEMID [Concomitant]
     Active Substance: FUROSEMIDE
     Route: 048
  12. SPIRIVA [Concomitant]
     Active Substance: TIOTROPIUM BROMIDE MONOHYDRATE
     Route: 048
  13. FORAIR [Concomitant]
     Active Substance: FORMOTEROL FUMARATE
     Route: 048

REACTIONS (4)
  - Faecaloma [Unknown]
  - Decreased appetite [Unknown]
  - Vomiting [Unknown]
  - Nausea [Unknown]
